FAERS Safety Report 7162821-4 (Version None)
Quarter: 2010Q4

REPORT INFORMATION
  Report Type: 
  Country: None (occurrence: None)
  Receive Date: 20101210
  Receipt Date: 20101210
  Transmission Date: 20110411
  Serious: No
  Sender: FDA-Public Use
  Company Number: None

PATIENT
  Age: 55 Year
  Sex: Female
  Weight: 51 kg

DRUGS (4)
  1. MONTELUKAST SODIUM [Suspect]
     Indication: HYPOAESTHESIA
     Dates: start: 20100605, end: 20101206
  2. MONTELUKAST SODIUM [Suspect]
     Indication: PAIN IN EXTREMITY
     Dates: start: 20100605, end: 20101206
  3. MONTELUKAST SODIUM [Suspect]
     Indication: PARAESTHESIA
     Dates: start: 20100605, end: 20101206
  4. MAXIMILANO PARRA -NEUMOLOGO- [Concomitant]

REACTIONS (4)
  - HYPOAESTHESIA [None]
  - MEMORY IMPAIRMENT [None]
  - PAIN IN EXTREMITY [None]
  - PARAESTHESIA [None]
